FAERS Safety Report 11844204 (Version 1)
Quarter: 2015Q4

REPORT INFORMATION
  Report Type: Spontaneous
  Country: CA (occurrence: CA)
  Receive Date: 20151217
  Receipt Date: 20151217
  Transmission Date: 20160305
  Serious: Yes (Other)
  Sender: FDA-Public Use
  Company Number: CA-SUNOVION-2015SUN001239

PATIENT
  Age: 28 Year
  Sex: Male
  Weight: 82.5 kg

DRUGS (2)
  1. LATUDA [Suspect]
     Active Substance: LURASIDONE HYDROCHLORIDE
     Indication: SCHIZOPHRENIA
     Dosage: 20 MG, QD
     Route: 048
  2. OLANZAPINE. [Concomitant]
     Active Substance: OLANZAPINE
     Dosage: UNK
     Route: 065

REACTIONS (3)
  - Blood bilirubin unconjugated increased [Recovering/Resolving]
  - Nausea [Recovering/Resolving]
  - Bilirubin conjugated increased [Unknown]

NARRATIVE: CASE EVENT DATE: 20151201
